FAERS Safety Report 18007781 (Version 3)
Quarter: 2020Q4

REPORT INFORMATION
  Report Type: Spontaneous
  Country: US (occurrence: US)
  Receive Date: 20200710
  Receipt Date: 20201023
  Transmission Date: 20210113
  Serious: No
  Sender: FDA-Public Use
  Company Number: US-VERTEX PHARMACEUTICALS-2020-014329

PATIENT
  Age: 41 Year
  Sex: Male
  Weight: 91 kg

DRUGS (15)
  1. ZILEUTON. [Concomitant]
     Active Substance: ZILEUTON
     Dosage: 1 TAB, BID FOR 90 DAYS
     Route: 048
  2. INSULIN LISPRO [Concomitant]
     Active Substance: INSULIN LISPRO
     Dosage: 40 UNIT
  3. AZITHROMYCIN ANHYDROUS. [Concomitant]
     Active Substance: AZITHROMYCIN ANHYDROUS
     Dosage: 1 TABLET FOR 90 DAYS
     Route: 048
  4. INSULIN GLARGINE [Concomitant]
     Active Substance: INSULIN GLARGINE
     Dosage: 34 UNITS
  5. DORNASE ALFA. [Concomitant]
     Active Substance: DORNASE ALFA
     Dosage: 1 AMPULSE VIA NEBULIZER ONE TIME DAILY
  6. URSODIOL. [Concomitant]
     Active Substance: URSODIOL
     Dosage: 2 CAPS FOR 90 DAYS
     Route: 048
  7. HUMALOG [Concomitant]
     Active Substance: INSULIN LISPRO
     Dosage: 1 MICRO:4GRAM CHO
  8. SYMBICORT [Concomitant]
     Active Substance: BUDESONIDE\FORMOTEROL FUMARATE DIHYDRATE
  9. TRIKAFTA [Suspect]
     Active Substance: ELEXACAFTOR\IVACAFTOR\TEZACAFTOR
     Indication: CYSTIC FIBROSIS
     Dosage: 2 ORANGE TAB AM, 1 BLUE TAB PM, BID
     Route: 048
     Dates: start: 20200317
  10. TRESIBA [Concomitant]
     Active Substance: INSULIN DEGLUDEC
     Dosage: 38 MICRO QHS
  11. ZENPEP [Concomitant]
     Active Substance: PANCRELIPASE AMYLASE\PANCRELIPASE LIPASE\PANCRELIPASE PROTEASE
     Dosage: 20000 UNITS, 2 CAPSULES
     Route: 048
  12. OMEPRAZOLE. [Concomitant]
     Active Substance: OMEPRAZOLE
     Dosage: 1 CAP, EVERYDAY FOR 90 DAYS
     Route: 048
  13. SODIUM CHLORIDE. [Concomitant]
     Active Substance: SODIUM CHLORIDE
     Dosage: 0.28 GM, 4 ML
  14. MOMETASONE [Concomitant]
     Active Substance: MOMETASONE
     Dosage: 2 SPRAYS IN BOTH NOSTRILS TWICE DAILY
     Route: 045
  15. LORATADINE. [Concomitant]
     Active Substance: LORATADINE
     Dosage: 90 DAYS, 90 TABS
     Route: 048

REACTIONS (2)
  - Salivary hypersecretion [Not Recovered/Not Resolved]
  - Weight increased [Recovering/Resolving]

NARRATIVE: CASE EVENT DATE: 20200408
